FAERS Safety Report 17422476 (Version 8)
Quarter: 2025Q1

REPORT INFORMATION
  Report Type: Report from Study
  Country: DE (occurrence: DE)
  Receive Date: 20200215
  Receipt Date: 20250204
  Transmission Date: 20250409
  Serious: Yes (Hospitalization, Other)
  Sender: RANBAXY
  Company Number: DE-SUN PHARMACEUTICAL INDUSTRIES LTD-2020RR-236633

PATIENT
  Age: 53 Year
  Sex: Female

DRUGS (3)
  1. ODOMZO [Suspect]
     Active Substance: SONIDEGIB
     Indication: Basal cell carcinoma
     Dosage: 200 MILLIGRAMS, DAILY
     Route: 048
     Dates: start: 20181115
  2. Infectcortisept [Concomitant]
     Indication: Basal cell carcinoma
     Route: 050
     Dates: start: 20201217
  3. CLINDAMYCIN [Concomitant]
     Active Substance: CLINDAMYCIN
     Indication: Prophylaxis
     Dosage: 600 MILLIGRAM, TID
     Route: 048

REACTIONS (4)
  - Basal cell carcinoma [Recovered/Resolved]
  - Maculopathy [Recovered/Resolved]
  - Bone pain [Recovered/Resolved]
  - Muscle spasms [Not Recovered/Not Resolved]
